FAERS Safety Report 8517931-3 (Version None)
Quarter: 2012Q3

REPORT INFORMATION
  Report Type: 
  Country: None (occurrence: None)
  Receive Date: 20120718
  Receipt Date: 20110721
  Transmission Date: 20120928
  Serious: No
  Sender: FDA-Public Use
  Company Number: US-BRISTOL-MYERS SQUIBB COMPANY-15916075

PATIENT
  Age: 6 Decade
  Sex: Female

DRUGS (2)
  1. ESTROGEN [Suspect]
     Dosage: CREAM
     Route: 067
  2. COUMADIN [Suspect]

REACTIONS (1)
  - INTERNATIONAL NORMALISED RATIO ABNORMAL [None]
